FAERS Safety Report 18214877 (Version 1)
Quarter: 2020Q3

REPORT INFORMATION
  Report Type: Spontaneous
  Country: US (occurrence: US)
  Receive Date: 20200831
  Receipt Date: 20200831
  Transmission Date: 20201103
  Serious: No
  Sender: FDA-Public Use
  Company Number: US-GALDERMA-US19054615

PATIENT
  Age: 25 Year
  Sex: Female

DRUGS (3)
  1. CETAPHIL GENTLE SKIN CLEANSER [Suspect]
     Active Substance: COSMETICS
     Indication: ACNE
     Route: 061
     Dates: start: 201809
  2. EPIDUO FORTE [Suspect]
     Active Substance: ADAPALENE\BENZOYL PEROXIDE
     Indication: ACNE
     Dosage: 0.3%/2.5%
     Route: 061
     Dates: start: 201809
  3. CETAPHIL PRO OIL REMOVE FOAM WASH (COSMETICS) [Suspect]
     Active Substance: COSMETICS
     Indication: ACNE
     Route: 061
     Dates: start: 201809

REACTIONS (4)
  - Erythema [Recovered/Resolved]
  - Skin irritation [Recovered/Resolved]
  - Sensitive skin [Recovered/Resolved]
  - Dry skin [Recovered/Resolved]

NARRATIVE: CASE EVENT DATE: 2018
